FAERS Safety Report 12093458 (Version 3)
Quarter: 2016Q3

REPORT INFORMATION
  Report Type: Spontaneous
  Country: FR (occurrence: FR)
  Receive Date: 20160219
  Receipt Date: 20160719
  Transmission Date: 20161109
  Serious: Yes (Hospitalization)
  Sender: FDA-Public Use
  Company Number: FR-AMGEN-FRASP2016017663

PATIENT
  Age: 39 Year
  Sex: Female

DRUGS (16)
  1. XGEVA [Suspect]
     Active Substance: DENOSUMAB
     Indication: PRODUCT USED FOR UNKNOWN INDICATION
     Dosage: 120 MG, QMO
     Route: 065
     Dates: start: 20150923
  2. FORLAX [Concomitant]
     Active Substance: POLYETHYLENE GLYCOL 4000
     Dosage: 2 SACHET, QD
     Dates: start: 20160121
  3. ROCEPHINE [Concomitant]
     Active Substance: CEFTRIAXONE SODIUM
     Dosage: UNK
     Route: 042
     Dates: start: 20160110
  4. CAPECITABINE. [Suspect]
     Active Substance: CAPECITABINE
     Dosage: 1300 MG, BID
     Route: 048
     Dates: start: 20151028
  5. LOVENOX [Concomitant]
     Active Substance: ENOXAPARIN SODIUM
     Dosage: 4000 IU, QD
     Dates: start: 20160121, end: 20160125
  6. CACIT D3 [Suspect]
     Active Substance: CALCIUM\CHOLECALCIFEROL
     Indication: BONE CANCER METASTATIC
     Dosage: 2 DF, BID
     Route: 065
     Dates: start: 20151028
  7. SPASFON [Concomitant]
     Active Substance: PHLOROGLUCINOL
     Dosage: 6 TABLETS, UNK
     Route: 048
     Dates: start: 20160121
  8. PANTOPRAZOLE [Concomitant]
     Active Substance: PANTOPRAZOLE SODIUM
     Dosage: 40 MG, UNK
     Dates: start: 20160121
  9. LYRICA [Concomitant]
     Active Substance: PREGABALIN
     Dosage: 150 MG, UNK
     Dates: start: 20160121
  10. TRASTUZUMAB EMTANSINE [Suspect]
     Active Substance: ADO-TRASTUZUMAB EMTANSINE
     Indication: HER-2 POSITIVE BREAST CANCER
     Dosage: 288 MG, Q3WK
     Route: 042
     Dates: start: 20151028
  11. OROCAL D3 [Concomitant]
     Active Substance: CALCIUM CARBONATE\CHOLECALCIFEROL
     Dosage: 2 DF, TABLETS UNK
     Route: 048
     Dates: start: 20160121
  12. ACUPAN [Concomitant]
     Active Substance: NEFOPAM HYDROCHLORIDE
     Dosage: 20 MG, UNK
     Dates: start: 20160121, end: 20160125
  13. TRAMADOL. [Concomitant]
     Active Substance: TRAMADOL
     Dosage: 8 DF TABLETS, UNK
     Route: 048
     Dates: start: 20160121
  14. CAPECITABINE. [Suspect]
     Active Substance: CAPECITABINE
     Indication: HER-2 POSITIVE BREAST CANCER
     Dosage: 1300 MG, BID
     Route: 048
     Dates: start: 20151028
  15. PRIMPERAN [Concomitant]
     Active Substance: METOCLOPRAMIDE HYDROCHLORIDE
     Dosage: 3 DF TABLETS, UNK
     Route: 048
     Dates: start: 20160121
  16. ZOPHREN [Concomitant]
     Active Substance: ONDANSETRON
     Dosage: 8 MG, UNK
     Dates: start: 20151028, end: 20151230

REACTIONS (7)
  - Pyrexia [Unknown]
  - Abdominal pain upper [Unknown]
  - Nausea [Unknown]
  - Abdominal pain [Recovered/Resolved]
  - Vomiting [Unknown]
  - Intestinal obstruction [Unknown]
  - Headache [Unknown]

NARRATIVE: CASE EVENT DATE: 20151209
